FAERS Safety Report 15802735 (Version 2)
Quarter: 2019Q2

REPORT INFORMATION
  Report Type: Spontaneous
  Country: IT (occurrence: IT)
  Receive Date: 20190109
  Receipt Date: 20190417
  Transmission Date: 20190711
  Serious: Yes (Hospitalization, Other)
  Sender: FDA-Public Use
  Company Number: PHHY2019IT000868

PATIENT
  Age: 78 Year
  Sex: Male

DRUGS (2)
  1. AMITRIPTYLINE [Suspect]
     Active Substance: AMITRIPTYLINE
     Indication: DEPRESSION
     Dosage: 60 MG, QD
     Route: 048
     Dates: start: 20170518, end: 20170525
  2. CLOMIPRAMINE [Suspect]
     Active Substance: CLOMIPRAMINE
     Indication: DEPRESSION
     Dosage: 75 MG, QD
     Route: 048
     Dates: start: 20170518

REACTIONS (8)
  - Ataxia [Recovered/Resolved]
  - Tremor [Unknown]
  - Cognitive disorder [Recovering/Resolving]
  - Dysphonia [Unknown]
  - Creutzfeldt-Jakob disease [Unknown]
  - Dysarthria [Recovered/Resolved]
  - Dysmetria [Unknown]
  - Myoclonus [Recovered/Resolved]
